FAERS Safety Report 5707050-3 (Version None)
Quarter: 2008Q2

REPORT INFORMATION
  Report Type: 
  Country: None (occurrence: None)
  Receive Date: 20080416
  Receipt Date: 20080331
  Transmission Date: 20081010
  Serious: Yes (Hospitalization)
  Sender: FDA-Public Use
  Company Number: B0514956A

PATIENT
  Age: 88 Year
  Sex: Female

DRUGS (5)
  1. AUGMENTIN '125' [Suspect]
     Indication: BRONCHITIS
     Route: 048
     Dates: start: 20080128, end: 20080204
  2. LOPRESSOR [Concomitant]
     Route: 065
  3. MODURETIC 5-50 [Concomitant]
     Route: 065
  4. MODAMIDE [Concomitant]
     Route: 065
  5. FENOFIBRATE [Concomitant]
     Route: 065

REACTIONS (2)
  - AUTOIMMUNE THROMBOCYTOPENIA [None]
  - THROMBOCYTOPENIA [None]
